FAERS Safety Report 4526567-0 (Version None)
Quarter: 2004Q4

REPORT INFORMATION
  Report Type: 
  Country: None (occurrence: None)
  Receive Date: 20041213
  Receipt Date: 20041203
  Transmission Date: 20050328
  Serious: Yes (Death)
  Sender: FDA-Public Use
  Company Number: THQ2004A01021

PATIENT
  Age: 52 Year
  Sex: Female

DRUGS (1)
  1. ACTOS [Suspect]

REACTIONS (1)
  - OEDEMA [None]
